FAERS Safety Report 5418991-9 (Version None)
Quarter: 2007Q3

REPORT INFORMATION
  Report Type: 
  Country: None (occurrence: None)
  Receive Date: 20070817
  Receipt Date: 20070807
  Transmission Date: 20080115
  Serious: Yes (Other)
  Sender: FDA-Public Use
  Company Number: US-PFIZER INC-2007066525

PATIENT
  Sex: Female
  Weight: 90 kg

DRUGS (7)
  1. CHANTIX [Suspect]
     Indication: SMOKING CESSATION THERAPY
     Dosage: TEXT:0.5MG BID EVERYDAY TDD:1MG
  2. LEVOTHROID [Concomitant]
  3. PRILOSEC [Concomitant]
  4. MELLARIL [Concomitant]
  5. XANAX [Concomitant]
  6. LEXAPRO [Concomitant]
  7. VICODIN [Concomitant]

REACTIONS (3)
  - ASTHENIA [None]
  - COORDINATION ABNORMAL [None]
  - FEELING JITTERY [None]
